FAERS Safety Report 16204179 (Version 1)
Quarter: 2019Q2

REPORT INFORMATION
  Report Type: Spontaneous
  Country: US (occurrence: US)
  Receive Date: 20190416
  Receipt Date: 20190416
  Transmission Date: 20190711
  Serious: Yes (Other)
  Sender: FDA-Public Use
  Company Number: US-AMGEN-USASP2019059507

PATIENT

DRUGS (1)
  1. IVABRADINE [Suspect]
     Active Substance: IVABRADINE
     Indication: POSTURAL ORTHOSTATIC TACHYCARDIA SYNDROME
     Dosage: UNK
     Route: 065

REACTIONS (9)
  - Photophobia [Unknown]
  - Pruritus [Unknown]
  - Tachycardia [Recovering/Resolving]
  - Burning sensation [Unknown]
  - Headache [Unknown]
  - Off label use [Unknown]
  - Visual impairment [Unknown]
  - Bradycardia [Unknown]
  - Tongue discomfort [Unknown]
